FAERS Safety Report 17555782 (Version 2)
Quarter: 2020Q2

REPORT INFORMATION
  Report Type: Spontaneous
  Country: ES (occurrence: ES)
  Receive Date: 20200318
  Receipt Date: 20200409
  Transmission Date: 20200713
  Serious: Yes (Hospitalization, Other)
  Sender: FDA-Public Use
  Company Number: ES-PFIZER INC-2020112045

PATIENT
  Age: 50 Year
  Sex: Male
  Weight: 76.9 kg

DRUGS (30)
  1. GEMCITABINE HYDROCHLORIDE. [Suspect]
     Active Substance: GEMCITABINE HYDROCHLORIDE
     Dosage: 1000 MG/M2, UNK
     Route: 041
     Dates: start: 20190130, end: 20190130
  2. GEMCITABINE HYDROCHLORIDE. [Suspect]
     Active Substance: GEMCITABINE HYDROCHLORIDE
     Dosage: 800 MG/M2, UNK
     Route: 041
     Dates: start: 20190410, end: 20190410
  3. MEDI 9447 [Suspect]
     Active Substance: OLECLUMAB
     Dosage: 3000 MG, UNK
     Route: 041
     Dates: start: 20190227, end: 20190227
  4. ABRAXANE [Suspect]
     Active Substance: PACLITAXEL
     Dosage: 125 MG/M2, UNK
     Route: 041
     Dates: start: 20190130, end: 20190130
  5. ABRAXANE [Suspect]
     Active Substance: PACLITAXEL
     Dosage: 100 MG/M2, UNK
     Route: 041
     Dates: start: 20190227, end: 20190227
  6. GEMCITABINE HYDROCHLORIDE. [Suspect]
     Active Substance: GEMCITABINE HYDROCHLORIDE
     Dosage: 800 MG/M2, UNK
     Route: 041
     Dates: start: 20190319, end: 20190319
  7. MEDI 9447 [Suspect]
     Active Substance: OLECLUMAB
     Indication: PANCREATIC CARCINOMA METASTATIC
     Dosage: 3000 MG, UNK
     Route: 041
     Dates: start: 20190123, end: 20190123
  8. ABRAXANE [Suspect]
     Active Substance: PACLITAXEL
     Indication: PANCREATIC CARCINOMA METASTATIC
     Dosage: 125 MG/M2, UNK
     Route: 041
     Dates: start: 20190123, end: 20190123
  9. ABRAXANE [Suspect]
     Active Substance: PACLITAXEL
     Dosage: 100 MG/M2, UNK
     Route: 041
     Dates: start: 20190319, end: 20190319
  10. OMEPRAZOLE. [Concomitant]
     Active Substance: OMEPRAZOLE
     Indication: PROPHYLAXIS AGAINST GASTROINTESTINAL ULCER
     Dosage: 20 MG, 1X/DAY
     Route: 048
     Dates: start: 2018
  11. GEMCITABINE HYDROCHLORIDE. [Suspect]
     Active Substance: GEMCITABINE HYDROCHLORIDE
     Dosage: 800 MG/M2, UNK
     Route: 041
     Dates: start: 20190404, end: 20190404
  12. MEDI 9447 [Suspect]
     Active Substance: OLECLUMAB
     Dosage: 3000 MG, UNK
     Route: 041
     Dates: start: 20190404, end: 20190404
  13. ABRAXANE [Suspect]
     Active Substance: PACLITAXEL
     Dosage: 100 MG/M2, UNK
     Route: 041
     Dates: start: 20190410, end: 20190410
  14. ABRAXANE [Suspect]
     Active Substance: PACLITAXEL
     Dosage: 100 MG/M2, UNK
     Route: 041
     Dates: start: 20190416, end: 20190416
  15. KREON [Concomitant]
     Active Substance: PANCRELIPASE
     Indication: PANCREATIC CARCINOMA METASTATIC
  16. GEMCITABINE HYDROCHLORIDE. [Suspect]
     Active Substance: GEMCITABINE HYDROCHLORIDE
     Dosage: 800 MG/M2, UNK
     Route: 041
     Dates: start: 20190416, end: 20190416
  17. MEDI 9447 [Suspect]
     Active Substance: OLECLUMAB
     Dosage: 3000 MG, UNK
     Route: 041
     Dates: start: 20190319, end: 20190319
  18. MEDI 9447 [Suspect]
     Active Substance: OLECLUMAB
     Dosage: 3000 MG, UNK
     Route: 041
     Dates: start: 20190513, end: 20190513
  19. ABRAXANE [Suspect]
     Active Substance: PACLITAXEL
     Dosage: 100 MG/M2, UNK
     Route: 041
     Dates: start: 20190213, end: 20190213
  20. ABRAXANE [Suspect]
     Active Substance: PACLITAXEL
     Dosage: 100 MG/M2, UNK
     Route: 041
     Dates: start: 20190513, end: 20190513
  21. KREON [Concomitant]
     Active Substance: PANCRELIPASE
     Indication: PROPHYLAXIS
     Dosage: 2500 IU, UNK
     Route: 048
     Dates: start: 2018
  22. GEMCITABINE HYDROCHLORIDE. [Suspect]
     Active Substance: GEMCITABINE HYDROCHLORIDE
     Indication: PANCREATIC CARCINOMA METASTATIC
     Dosage: 1000 MG/M2, UNK
     Route: 041
     Dates: start: 20190123, end: 20190123
  23. ABRAXANE [Suspect]
     Active Substance: PACLITAXEL
     Dosage: 100 MG/M2, UNK
     Route: 041
     Dates: start: 20190520, end: 20190520
  24. MEDI 9447 [Suspect]
     Active Substance: OLECLUMAB
     Dosage: 3000 MG, UNK
     Route: 041
     Dates: start: 20190213, end: 20190213
  25. MEDI 9447 [Suspect]
     Active Substance: OLECLUMAB
     Dosage: UNK
  26. ABRAXANE [Suspect]
     Active Substance: PACLITAXEL
     Dosage: 100 MG/M2, UNK
     Route: 041
     Dates: start: 20190404, end: 20190404
  27. GEMCITABINE HYDROCHLORIDE. [Suspect]
     Active Substance: GEMCITABINE HYDROCHLORIDE
     Dosage: 800 MG/M2, UNK
     Route: 041
     Dates: start: 20190213, end: 20190213
  28. GEMCITABINE HYDROCHLORIDE. [Suspect]
     Active Substance: GEMCITABINE HYDROCHLORIDE
     Dosage: 800 MG/M2, UNK
     Route: 041
     Dates: start: 20190227, end: 20190227
  29. NAPROXEN SODIUM. [Concomitant]
     Active Substance: NAPROXEN SODIUM
     Indication: NAUSEA
     Dosage: 10 MG, UNK
     Route: 002
     Dates: start: 20190124
  30. URBASON [METHYLPREDNISOLONE ACETATE] [Concomitant]
     Indication: ASTHENIA
     Dosage: 23 MG, 1X/DAY
     Route: 002
     Dates: start: 20190416

REACTIONS (1)
  - Bile duct obstruction [Recovered/Resolved]

NARRATIVE: CASE EVENT DATE: 20190423
